FAERS Safety Report 6245648-7 (Version None)
Quarter: 2009Q2

REPORT INFORMATION
  Report Type: 
  Country: None (occurrence: None)
  Receive Date: 20090625
  Receipt Date: 20090428
  Transmission Date: 20091009
  Serious: No
  Sender: FDA-Public Use
  Company Number: US-ASTRAZENECA-2009UW08133

PATIENT
  Age: 96 Year
  Sex: Male
  Weight: 108.9 kg

DRUGS (1)
  1. ZOLADEX [Suspect]
     Indication: PROSTATE CANCER
     Route: 057

REACTIONS (1)
  - PRODUCT QUALITY ISSUE [None]
